FAERS Safety Report 9852182 (Version 1)
Quarter: 2014Q1

REPORT INFORMATION
  Report Type: Spontaneous
  Country: US (occurrence: US)
  Receive Date: 20140129
  Receipt Date: 20140129
  Transmission Date: 20141002
  Serious: Yes (Other)
  Sender: FDA-Public Use
  Company Number: US-BRACCO-009714

PATIENT
  Age: 48 Year
  Sex: Female
  Weight: 110 kg

DRUGS (11)
  1. MULTIHANCE [Suspect]
     Indication: NUCLEAR MAGNETIC RESONANCE IMAGING BRAIN
     Route: 042
     Dates: start: 20130701, end: 20130701
  2. CRESTOR [Concomitant]
  3. GLIPIZIDE XL [Concomitant]
  4. DIVALPROEX SODIUM [Concomitant]
  5. VICTOZA [Concomitant]
  6. ALBUTEROL [Concomitant]
  7. ATORVASTATIN [Concomitant]
  8. CETIRIZINE [Concomitant]
  9. LEVOTHYROXINE [Concomitant]
  10. LISINOPRIL [Concomitant]
  11. METFORMIN [Concomitant]

REACTIONS (1)
  - Hypersensitivity [Recovered/Resolved]
